FAERS Safety Report 15491221 (Version 3)
Quarter: 2021Q4

REPORT INFORMATION
  Report Type: Spontaneous
  Country: US (occurrence: US)
  Receive Date: 20181012
  Receipt Date: 20211225
  Transmission Date: 20220303
  Serious: Yes (Other)
  Sender: FDA-Public Use
  Company Number: US-TEVA-2018-US-961649

PATIENT
  Age: 80 Year
  Sex: Female

DRUGS (3)
  1. SOTALOL HYDROCHLORIDE [Suspect]
     Active Substance: SOTALOL HYDROCHLORIDE
     Indication: Atrial fibrillation
     Dosage: 2 DOSAGE FORMS DAILY;
     Route: 048
     Dates: start: 2010, end: 20180909
  2. AMIODARONE [Suspect]
     Active Substance: AMIODARONE
     Indication: Atrial fibrillation
     Dosage: 1 DOSAGE FORMS DAILY;
     Route: 048
  3. WARFARIN [Concomitant]
     Active Substance: WARFARIN
     Indication: Atrial fibrillation
     Dosage: 1 DOSAGE FORMS DAILY; TAKE ONE-HALF TABLET BY MOUTH ON ALTERNATING DAYS
     Route: 048

REACTIONS (1)
  - Drug ineffective [Unknown]
